FAERS Safety Report 21322046 (Version 2)
Quarter: 2022Q3

REPORT INFORMATION
  Report Type: Spontaneous
  Country: US (occurrence: US)
  Receive Date: 20220912
  Receipt Date: 20220918
  Transmission Date: 20221026
  Serious: Yes (Other)
  Sender: FDA-Public Use
  Company Number: US-BEH-2022149544

PATIENT
  Sex: Male

DRUGS (4)
  1. KCENTRA [Suspect]
     Active Substance: COAGULATION FACTOR IX HUMAN\COAGULATION FACTOR VII HUMAN\COAGULATION FACTOR X HUMAN\PROTEIN C\PROTEI
     Indication: Rectal haemorrhage
     Dosage: 2000 INTERNATIONAL UNIT
     Route: 065
  2. KCENTRA [Suspect]
     Active Substance: COAGULATION FACTOR IX HUMAN\COAGULATION FACTOR VII HUMAN\COAGULATION FACTOR X HUMAN\PROTEIN C\PROTEI
     Indication: Rectal haemorrhage
     Dosage: 2000 INTERNATIONAL UNIT
     Route: 065
  3. KCENTRA [Suspect]
     Active Substance: COAGULATION FACTOR IX HUMAN\COAGULATION FACTOR VII HUMAN\COAGULATION FACTOR X HUMAN\PROTEIN C\PROTEI
     Dosage: 2000 INTERNATIONAL UNIT
     Route: 065
  4. KCENTRA [Suspect]
     Active Substance: COAGULATION FACTOR IX HUMAN\COAGULATION FACTOR VII HUMAN\COAGULATION FACTOR X HUMAN\PROTEIN C\PROTEI
     Dosage: 2000 INTERNATIONAL UNIT
     Route: 065

REACTIONS (5)
  - Deep vein thrombosis [Unknown]
  - Medical device site thrombosis [Unknown]
  - Extra dose administered [Unknown]
  - No adverse event [Unknown]
  - Off label use [Unknown]
